FAERS Safety Report 23275971 (Version 1)
Quarter: 2023Q4

REPORT INFORMATION
  Report Type: Spontaneous
  Country: US (occurrence: US)
  Receive Date: 20231208
  Receipt Date: 20231208
  Transmission Date: 20240109
  Serious: No
  Sender: FDA-Public Use
  Company Number: US-drreddys-SPO/USA/23/0187937

PATIENT
  Age: 15 Year
  Sex: Female

DRUGS (2)
  1. ACCUTANE [Suspect]
     Active Substance: ISOTRETINOIN
     Indication: Product used for unknown indication
     Dosage: 20 MG, QUANTITY: BOX OF 30, TWO PILLS
     Dates: end: 20231204
  2. ACCUTANE [Suspect]
     Active Substance: ISOTRETINOIN
     Dosage: 20 MG, QUANTITY: BOX OF 30, ONE PILL
     Dates: end: 20231204

REACTIONS (1)
  - Abdominal pain upper [Unknown]

NARRATIVE: CASE EVENT DATE: 20230925
